FAERS Safety Report 20837232 (Version 1)
Quarter: 2022Q2

REPORT INFORMATION
  Report Type: Spontaneous
  Country: US (occurrence: US)
  Receive Date: 20220517
  Receipt Date: 20220517
  Transmission Date: 20220721
  Serious: No
  Sender: FDA-Public Use
  Company Number: US-ALLERGAN-2135210US

PATIENT
  Age: 74 Year
  Sex: Female
  Weight: 72.57 kg

DRUGS (3)
  1. MESALAMINE [Suspect]
     Active Substance: MESALAMINE
     Indication: Proctitis
     Dosage: 1000 MG, PRN
     Route: 054
  2. MESALAMINE [Suspect]
     Active Substance: MESALAMINE
     Dosage: 1000 MG, PRN
     Route: 054
     Dates: start: 202011
  3. PROCTOFOAM [Concomitant]
     Active Substance: PRAMOXINE HYDROCHLORIDE
     Dosage: UNK
     Dates: start: 202109

REACTIONS (4)
  - Rectal discharge [Unknown]
  - Wrong technique in product usage process [Unknown]
  - Inappropriate schedule of product administration [Unknown]
  - Product packaging issue [Unknown]

NARRATIVE: CASE EVENT DATE: 20201201
